FAERS Safety Report 9902476 (Version 2)
Quarter: 2014Q2

REPORT INFORMATION
  Report Type: Spontaneous
  Country: US (occurrence: US)
  Receive Date: 20140217
  Receipt Date: 20140513
  Transmission Date: 20141212
  Serious: No
  Sender: FDA-Public Use
  Company Number: US-GILEAD-2014-0094550

PATIENT
  Sex: Female

DRUGS (1)
  1. LETAIRIS [Suspect]
     Indication: PULMONARY HYPERTENSION
     Dosage: 10 MG, QD
     Route: 065
     Dates: start: 20080130

REACTIONS (5)
  - Cardiac disorder [Unknown]
  - Arrhythmia [Unknown]
  - Renal disorder [Unknown]
  - Fatigue [Unknown]
  - Asthenia [Unknown]
